FAERS Safety Report 8250382-8 (Version None)
Quarter: 2012Q2

REPORT INFORMATION
  Report Type: 
  Country: None (occurrence: None)
  Receive Date: 20120402
  Receipt Date: 20120321
  Transmission Date: 20120825
  Serious: Yes (Hospitalization)
  Sender: FDA-Public Use
  Company Number: FR-ROCHE-1051362

PATIENT
  Sex: Male
  Weight: 74 kg

DRUGS (2)
  1. VEMURAFENIB [Suspect]
     Indication: MALIGNANT MELANOMA
     Dates: start: 20111027
  2. VEMURAFENIB [Suspect]

REACTIONS (1)
  - PYELONEPHRITIS [None]
